FAERS Safety Report 8681663 (Version 2)
Quarter: 2012Q4

REPORT INFORMATION
  Report Type: 
  Country: JP (occurrence: JP)
  Receive Date: 20120725
  Receipt Date: 20121011
  Transmission Date: 20130627
  Serious: Yes (Hospitalization, Other)
  Sender: FDA-Public Use
  Company Number: JP-ASTELLAS-2012JP006666

PATIENT
  Age: 9 Year
  Sex: Male
  Weight: 29 kg

DRUGS (12)
  1. PROGRAF [Suspect]
     Indication: GRAFT VERSUS HOST DISEASE
     Dosage: 0.4 mg, UID/QD
     Route: 041
     Dates: start: 20110915
  2. METHOTREXATE [Suspect]
     Indication: PROPHYLAXIS AGAINST GRAFT VERSUS HOST DISEASE
     Route: 065
  3. CELLCEPT                           /01275102/ [Concomitant]
     Indication: GRAFT VERSUS HOST DISEASE
     Dosage: 750 mg, bid
     Route: 048
     Dates: start: 20111019
  4. REMICADE [Concomitant]
     Indication: GRAFT VERSUS HOST DISEASE
     Dosage: 150 mg, Unknown/D
     Route: 041
     Dates: start: 20111015
  5. SOLU MEDROL [Concomitant]
     Indication: GRAFT VERSUS HOST DISEASE
     Dosage: 20 mg, tid
     Route: 042
     Dates: start: 20110915, end: 20120304
  6. URSO                               /00465701/ [Concomitant]
     Indication: GRAFT VERSUS HOST DISEASE
     Dosage: 50 mg, tid
     Route: 048
     Dates: start: 20110903
  7. GRANISETRON                        /01178102/ [Concomitant]
     Indication: ABDOMINAL DISCOMFORT
     Dosage: 1 mg, UID/QD
     Route: 042
     Dates: start: 20110906, end: 20111026
  8. GASTER [Concomitant]
     Indication: PROPHYLAXIS AGAINST GASTROINTESTINAL ULCER
     Dosage: 15 mg, bid
     Route: 042
     Dates: start: 20110905, end: 20120506
  9. FUNGUARD [Concomitant]
     Indication: FUNGAL INFECTION
     Dosage: 100 mg, UID/QD
     Route: 041
     Dates: start: 20111005, end: 20120507
  10. DENOSINE                           /00784201/ [Concomitant]
     Indication: CYTOMEGALOVIRUS INFECTION
     Dosage: 150 mg, bid
     Route: 041
     Dates: start: 20111005, end: 20120120
  11. POLYMYXIN B SULFATE [Concomitant]
     Indication: ENTERITIS INFECTIOUS
     Dosage: 2 MIU, UID/QD
     Route: 048
     Dates: start: 20101124
  12. MICARDIS [Concomitant]
     Indication: HYPERTENSION
     Dosage: 20 mg, UID/QD
     Route: 048
     Dates: start: 20110419

REACTIONS (3)
  - Drug ineffective [Unknown]
  - Graft versus host disease [Unknown]
  - Pneumatosis intestinalis [Recovered/Resolved]
